FAERS Safety Report 6732462 (Version 20)
Quarter: 2013Q3

REPORT INFORMATION
  Report Type: Spontaneous
  Country: US (occurrence: US)
  Receive Date: 20080821
  Receipt Date: 20130814
  Transmission Date: 20140515
  Serious: Yes (Hospitalization, Disabling, Other)
  Sender: FDA-Public Use
  Company Number: PHEH2008US07165

PATIENT
  Age: 79 Year
  Sex: Male
  Weight: 72.25 kg

DRUGS (63)
  1. SOMA [Concomitant]
  2. DOXYCYCLINE [Concomitant]
  3. OPTIVAR [Concomitant]
     Dates: start: 20060405
  4. WARFARIN [Concomitant]
  5. MEGACE [Concomitant]
     Route: 048
  6. PYRIDOXINE [Concomitant]
  7. PROAMATINE [Concomitant]
     Route: 048
  8. LANOXIN [Concomitant]
  9. PARADEX [Concomitant]
  10. TRIMETHOPRIM SULFATE [Concomitant]
     Route: 048
  11. BACTRIM [Concomitant]
  12. PRINIVIL [Concomitant]
  13. NEXIUM [Concomitant]
  14. LUCENTIS [Concomitant]
  15. PHOTODYNAMIC INACTIVATION [Concomitant]
  16. PROTONIX ^PHARMACIA^ [Concomitant]
  17. CYANOCOBALAMIN [Concomitant]
     Route: 058
  18. LEVOTHYROXINE [Concomitant]
  19. NALBUPHINE [Concomitant]
  20. TORADOL [Concomitant]
  21. ZOFRAN [Concomitant]
  22. ASPIRIN ^BAYER^ [Concomitant]
  23. MORPHINE [Concomitant]
  24. ZOMETA [Suspect]
     Indication: BONE CANCER
     Dosage: 1 MG, QMO
     Dates: start: 2002, end: 200408
  25. ZOMETA [Suspect]
     Dosage: 4 MG, QMO
     Route: 042
  26. LUPRON [Concomitant]
     Indication: BONE CANCER
     Dosage: 22.5 MG, Q3MO
     Route: 030
     Dates: start: 200210
  27. RADIATION THERAPY [Concomitant]
  28. CLEOCIN [Concomitant]
  29. CLINDAMYCIN [Concomitant]
     Dosage: 150 MG, QID
  30. CASODEX [Concomitant]
  31. CALCIUM [Concomitant]
  32. VITAMIN D [Concomitant]
  33. COUMADIN ^BOOTS^ [Concomitant]
     Dosage: 5 MG, QD
     Route: 048
  34. BUSPAR [Concomitant]
  35. XANAX [Concomitant]
  36. KEFLEX                                  /UNK/ [Concomitant]
     Indication: TOOTHACHE
  37. ZOLOFT [Concomitant]
     Indication: DEPRESSION
     Route: 048
  38. ALPRAZOLAM [Concomitant]
  39. ELIGARD [Concomitant]
  40. QUININE [Concomitant]
     Indication: MUSCLE SPASMS
  41. MIRALAX [Concomitant]
  42. ASA [Concomitant]
  43. VIOXX [Concomitant]
     Route: 048
  44. MEGESTROL [Concomitant]
     Dosage: 40 MG, QD,
  45. REMERON [Concomitant]
  46. LISINOPRIL [Concomitant]
  47. SPIRAMYCIN ACETYLATE [Concomitant]
  48. DIGOXIN [Concomitant]
  49. GLYCILAX [Concomitant]
  50. AVASTIN [Concomitant]
     Dates: start: 20070502
  51. SPIRONOLACTONE [Concomitant]
     Dosage: 25 MG, QHS
  52. MIDODRINE [Concomitant]
  53. GLYCOLAX [Concomitant]
  54. REGLAN                                  /USA/ [Concomitant]
     Dosage: 10 MG, QD
  55. ALPHAGAN P [Concomitant]
  56. MIRTAZAPINE [Concomitant]
  57. MUCINEX [Concomitant]
  58. TEGRETOL [Concomitant]
  59. TRAMADOL [Concomitant]
  60. TOBRAMYCIN [Concomitant]
     Indication: PSEUDOMONAS INFECTION
     Dosage: 340 MG,
     Dates: start: 20081122, end: 20081221
  61. TYLENOL [Concomitant]
  62. ULTRAM [Concomitant]
  63. ZITHROMAX Z-PACK [Concomitant]

REACTIONS (102)
  - Colitis ischaemic [Unknown]
  - Syncope [Unknown]
  - Small intestinal obstruction [Recovered/Resolved]
  - Major depression [Recovering/Resolving]
  - Suicidal ideation [Recovering/Resolving]
  - Osteonecrosis of jaw [Unknown]
  - Bone disorder [Unknown]
  - Hypoaesthesia [Unknown]
  - Injury [Unknown]
  - Physical disability [Unknown]
  - Pain [Unknown]
  - Anxiety [Unknown]
  - Mental disorder [Unknown]
  - Anhedonia [Unknown]
  - Activities of daily living impaired [Unknown]
  - Thrombophlebitis [Unknown]
  - Cardiac failure congestive [Unknown]
  - Inflammation [Unknown]
  - Impaired healing [Unknown]
  - Abscess [Unknown]
  - Jaw fracture [Unknown]
  - Toothache [Unknown]
  - Gingivitis [Unknown]
  - Mastication disorder [Unknown]
  - Tooth impacted [Unknown]
  - Chronic obstructive pulmonary disease [Unknown]
  - Macular degeneration [Unknown]
  - Weight decreased [Recovering/Resolving]
  - Metastatic neoplasm [Unknown]
  - Renal cyst [Unknown]
  - Osteoarthritis [Unknown]
  - Bone swelling [Unknown]
  - Osteomyelitis [Unknown]
  - Gastroenteritis [Unknown]
  - Nausea [Unknown]
  - Vomiting [Unknown]
  - Back pain [Unknown]
  - Spinal osteoarthritis [Unknown]
  - Visual impairment [Unknown]
  - Osteopenia [Unknown]
  - Musculoskeletal discomfort [Unknown]
  - Lumbar spinal stenosis [Unknown]
  - Pain in extremity [Unknown]
  - Deafness [Unknown]
  - Arrhythmia [Unknown]
  - Haemorrhagic diathesis [Unknown]
  - Cardiomegaly [Unknown]
  - Pancreatitis [Unknown]
  - Pseudomonas infection [Unknown]
  - Urinary incontinence [Unknown]
  - Dyspnoea [Unknown]
  - Neuralgia [Unknown]
  - Intermittent claudication [Unknown]
  - Bursitis [Unknown]
  - Fall [Unknown]
  - Dysaesthesia [Unknown]
  - Muscular weakness [Unknown]
  - Bone cyst [Unknown]
  - Decreased activity [Unknown]
  - Posture abnormal [Unknown]
  - Hyporeflexia [Unknown]
  - Bundle branch block left [Unknown]
  - Hypocoagulable state [Unknown]
  - Polymyalgia rheumatica [Recovered/Resolved]
  - Calculus urinary [Unknown]
  - Balance disorder [Unknown]
  - Glaucoma [Unknown]
  - Cataract [Unknown]
  - Left ventricular dysfunction [Unknown]
  - Coronary artery disease [Unknown]
  - Jaw disorder [Unknown]
  - Cardiomyopathy [Unknown]
  - Supraventricular extrasystoles [Unknown]
  - Metastases to bone [Unknown]
  - Heart valve incompetence [Unknown]
  - Dilatation atrial [Unknown]
  - Joint effusion [Unknown]
  - Meniscus injury [Unknown]
  - Ejection fraction decreased [Unknown]
  - Confusional state [Unknown]
  - Arteriosclerosis [Unknown]
  - Cerebral atrophy [Unknown]
  - Vitreous detachment [Unknown]
  - Gastrooesophageal reflux disease [Unknown]
  - Deep vein thrombosis [Unknown]
  - Pneumonia [Unknown]
  - Azotaemia [Unknown]
  - Lung disorder [Unknown]
  - Otitis externa [Unknown]
  - Meniscal degeneration [Unknown]
  - Rotator cuff syndrome [Unknown]
  - Arthropathy [Unknown]
  - Spinal column stenosis [Unknown]
  - Psychotic disorder [Unknown]
  - Agitation [Unknown]
  - Rib fracture [Unknown]
  - Ligament sprain [Unknown]
  - Ocular hypertension [Unknown]
  - Retinal haemorrhage [Unknown]
  - Scoliosis [Unknown]
  - Blood glucose increased [Unknown]
  - Soft tissue atrophy [Unknown]
